FAERS Safety Report 23487309 (Version 2)
Quarter: 2024Q1

REPORT INFORMATION
  Report Type: Spontaneous
  Country: IT (occurrence: IT)
  Receive Date: 20240206
  Receipt Date: 20240226
  Transmission Date: 20240409
  Serious: Yes (Hospitalization)
  Sender: FDA-Public Use
  Company Number: IT-TEVA-VS-3150552

PATIENT
  Age: 51 Year
  Sex: Female

DRUGS (18)
  1. BORTEZOMIB [Suspect]
     Active Substance: BORTEZOMIB
     Indication: Plasma cell myeloma
     Dosage: 4 INDUCTION CYCLES ALONG WITH CYCLOPHOSPHAMIDE AND DEXAMETHASONE
     Route: 065
  2. BORTEZOMIB [Suspect]
     Active Substance: BORTEZOMIB
     Indication: Plasma cell myeloma
     Dosage: TWO CONSOLIDATION CYCLES ALONG WITH LENALIDOMIDE AND DEXAMETHASONE
     Route: 065
  3. DARATUMUMAB [Suspect]
     Active Substance: DARATUMUMAB
     Indication: Plasma cell myeloma
     Dosage: THIRD LINE THERAPY ALONG WITH LENALIDOMIDE AND DEXAMETHASONE
     Route: 065
  4. LENALIDOMIDE [Suspect]
     Active Substance: LENALIDOMIDE
     Indication: Plasma cell myeloma
     Dosage: MAINTENANCE THERAPY
     Route: 065
  5. LENALIDOMIDE [Suspect]
     Active Substance: LENALIDOMIDE
     Indication: Plasma cell myeloma
     Dosage: TWO CONSOLIDATION CYCLES ALONG WITH BORTEZOMIB AND DEXAMETHASONE
     Route: 065
  6. LENALIDOMIDE [Suspect]
     Active Substance: LENALIDOMIDE
     Indication: Plasma cell myeloma
     Dosage: THIRD LINE THERAPY ALONG WITH DARATUMUMAB AND DEXAMETHASONE
     Route: 065
  7. MOLNUPIRAVIR [Suspect]
     Active Substance: MOLNUPIRAVIR
     Indication: COVID-19
     Route: 065
     Dates: start: 2022
  8. REMDESIVIR [Suspect]
     Active Substance: REMDESIVIR
     Indication: COVID-19
     Route: 065
     Dates: start: 2022
  9. TOZINAMERAN [Suspect]
     Active Substance: TOZINAMERAN
     Indication: COVID-19 immunisation
     Dosage: THREE DOSES
     Route: 065
     Dates: end: 202203
  10. CARFILZOMIB [Suspect]
     Active Substance: CARFILZOMIB
     Indication: Plasma cell myeloma
     Dosage: 8 CYCLES OF INDUCTION THERAPY ALONG WITH POMALIDOMIDE AND DEXAMETHASONE
     Route: 065
     Dates: start: 2020
  11. CILGAVIMAB\TIXAGEVIMAB [Suspect]
     Active Substance: CILGAVIMAB\TIXAGEVIMAB
     Indication: COVID-19
     Route: 065
     Dates: start: 2022
  12. POMALIDOMIDE [Suspect]
     Active Substance: POMALIDOMIDE
     Indication: Plasma cell myeloma
     Dosage: 8 CYCLES OF INDUCTION THERAPY ALONG WITH CARFILZOMIB AND DEXAMETHASONE
     Route: 065
     Dates: start: 2020
  13. POMALIDOMIDE [Suspect]
     Active Substance: POMALIDOMIDE
     Indication: Plasma cell myeloma
     Dosage: MAINTENANCE THERAPY
     Route: 065
  14. DEXAMETHASONE [Suspect]
     Active Substance: DEXAMETHASONE
     Indication: Plasma cell myeloma
     Dosage: TWO CONSOLIDATION CYCLES ALONG WITH BORTEZOMIB AND LENALIDOMIDE
     Route: 065
  15. DEXAMETHASONE [Suspect]
     Active Substance: DEXAMETHASONE
     Indication: Plasma cell myeloma
     Dosage: THIRD LINE THERAPY ALONG WITH DARATUMUMAB AND LENALIDOMIDE
     Route: 065
  16. DEXAMETHASONE [Suspect]
     Active Substance: DEXAMETHASONE
     Indication: Plasma cell myeloma
     Dosage: 8 CYCLES OF INDUCTION THERAPY ALONG WITH CARFILZOMIB AND POMALIDOMIDE
     Route: 065
     Dates: start: 2020
  17. DEXAMETHASONE [Suspect]
     Active Substance: DEXAMETHASONE
     Indication: Plasma cell myeloma
     Dosage: 4 INDUCTION CYCLES ALONG WITH BORTEZOMIB AND CYCLOPHOSPHAMIDE
     Route: 065
  18. TOCILIZUMAB [Suspect]
     Active Substance: TOCILIZUMAB
     Indication: Cytokine release syndrome
     Route: 065

REACTIONS (6)
  - COVID-19 [Recovered/Resolved]
  - Vaccination failure [Unknown]
  - Respiratory failure [Recovering/Resolving]
  - Drug ineffective [Unknown]
  - Bronchopulmonary aspergillosis [Unknown]
  - COVID-19 pneumonia [Recovering/Resolving]

NARRATIVE: CASE EVENT DATE: 20220101
